FAERS Safety Report 5009871-1 (Version None)
Quarter: 2006Q2

REPORT INFORMATION
  Report Type: 
  Country: None (occurrence: None)
  Receive Date: 20060523
  Receipt Date: 20060523
  Transmission Date: 20061013
  Serious: Yes (Other)
  Sender: FDA-Public Use
  Company Number: None

PATIENT
  Age: 47 Year
  Sex: Female
  Weight: 66.6788 kg

DRUGS (1)
  1. REMBRANDT INTENSE STAIN REMOVAL WHITENING TOOTHPASTE [Suspect]
     Indication: TOOTH DISCOLOURATION
     Dosage: USED AS DIRECTED  2 X A DAY

REACTIONS (4)
  - CONTUSION [None]
  - DEPRESSION [None]
  - TOOTH DISCOLOURATION [None]
  - TOOTH DISORDER [None]
